FAERS Safety Report 20503205 (Version 2)
Quarter: 2022Q1

REPORT INFORMATION
  Report Type: Spontaneous
  Country: US (occurrence: US)
  Receive Date: 20220222
  Receipt Date: 20220228
  Transmission Date: 20220423
  Serious: Yes (Other)
  Sender: FDA-Public Use
  Company Number: US-SA-2022SA054803

PATIENT
  Age: 49 Year
  Sex: Male

DRUGS (3)
  1. OXALIPLATIN [Suspect]
     Active Substance: OXALIPLATIN
     Indication: Adenocarcinoma metastatic
     Dosage: UNK, QCY (FOLFOX)
  2. LEUCOVORIN [Concomitant]
     Active Substance: LEUCOVORIN
     Indication: Adenocarcinoma metastatic
     Dosage: UNK UNK, QCY (FOLFOX)
  3. FLUOROURACIL [Concomitant]
     Active Substance: FLUOROURACIL
     Indication: Adenocarcinoma metastatic
     Dosage: UNK UNK, QCY (FOLFOX)

REACTIONS (4)
  - Extremity necrosis [Unknown]
  - Skin discolouration [Unknown]
  - Pain in extremity [Recovering/Resolving]
  - Ischaemia [Unknown]
